FAERS Safety Report 10212981 (Version 1)
Quarter: 2014Q2

REPORT INFORMATION
  Report Type: Spontaneous
  Country: DE (occurrence: DE)
  Receive Date: 20140602
  Receipt Date: 20140602
  Transmission Date: 20141212
  Serious: Yes (Other)
  Sender: FDA-Public Use
  Company Number: GXKR2014DE002037

PATIENT
  Age: 32 Year
  Sex: Male
  Weight: 65 kg

DRUGS (2)
  1. MEROPENEM [Suspect]
     Indication: PNEUMONIA
     Dosage: 3 G, UNK
     Route: 042
     Dates: start: 20140502, end: 20140503
  2. GENTAMICIN [Suspect]
     Indication: PNEUMONIA
     Dosage: 240 MG, UNK
     Route: 042
     Dates: start: 20140502, end: 20140504

REACTIONS (2)
  - Hepatic function abnormal [Recovering/Resolving]
  - Transaminases increased [Recovering/Resolving]
